FAERS Safety Report 7671291-9 (Version None)
Quarter: 2011Q3

REPORT INFORMATION
  Report Type: 
  Country: None (occurrence: None)
  Receive Date: 20110809
  Receipt Date: 20110805
  Transmission Date: 20111222
  Serious: Yes (Hospitalization)
  Sender: FDA-Public Use
  Company Number: US-SANOFI-AVENTIS-2011SA045745

PATIENT
  Age: 84 Year
  Sex: Male
  Weight: 63.5 kg

DRUGS (10)
  1. ATENOLOL [Concomitant]
     Dates: start: 20080827
  2. COUMADIN [Concomitant]
     Dates: start: 20080827
  3. QUININE SULFATE [Concomitant]
  4. CELEBREX [Concomitant]
     Route: 065
  5. ACCUPRIL [Concomitant]
     Dates: start: 20110204
  6. ASPIRIN [Concomitant]
     Dates: start: 20080827
  7. FUROSEMIDE [Concomitant]
     Dates: start: 20110628
  8. ENALAPRIL MALEATE [Concomitant]
  9. MULTAQ [Suspect]
     Indication: ATRIAL FIBRILLATION
     Route: 048
     Dates: start: 20110624, end: 20110628
  10. NEXIUM [Concomitant]

REACTIONS (7)
  - DYSPNOEA [None]
  - RENAL FAILURE ACUTE [None]
  - HYPONATRAEMIA [None]
  - CARDIAC FAILURE CONGESTIVE [None]
  - ARRHYTHMIA [None]
  - OEDEMA [None]
  - FATIGUE [None]
